FAERS Safety Report 4688436-5 (Version None)
Quarter: 2005Q2

REPORT INFORMATION
  Report Type: 
  Country: None (occurrence: None)
  Receive Date: 20050609
  Receipt Date: 20050530
  Transmission Date: 20051028
  Serious: Yes (Life-Threatening, Hospitalization)
  Sender: FDA-Public Use
  Company Number: 2004116962

PATIENT
  Age: 69 Year
  Sex: Male
  Weight: 51.5 kg

DRUGS (8)
  1. CABERGOLINE [Suspect]
     Indication: DEMENTIA
     Dosage: 0.25 MG, ORAL
     Route: 048
     Dates: start: 20040801
  2. DOPS (DROXIDOPA) [Suspect]
     Indication: DEMENTIA
     Dosage: 100 MG, ORAL
     Route: 048
     Dates: start: 20041125
  3. PAXIL [Suspect]
     Indication: ANXIETY
     Dosage: 10 MG (10 MG), ORAL
     Route: 048
     Dates: start: 20041126, end: 20041214
  4. AMOBAN (ZOPICLONE) [Concomitant]
  5. SUCRALFATE [Concomitant]
  6. MAGNESIUM OXIDE (MAGNESIUM OXIDE) [Concomitant]
  7. LAXOBERON (SODIUM PICOSULFATE) [Concomitant]
  8. ARICEPT [Concomitant]

REACTIONS (9)
  - AGRANULOCYTOSIS [None]
  - APLASTIC ANAEMIA [None]
  - BLOOD DISORDER [None]
  - BLOOD PRESSURE DECREASED [None]
  - BONE MARROW DEPRESSION [None]
  - DISSEMINATED INTRAVASCULAR COAGULATION [None]
  - DRUG INEFFECTIVE [None]
  - SEPSIS [None]
  - VIRAL INFECTION [None]
